FAERS Safety Report 9225082 (Version 1)
Quarter: 2013Q2

REPORT INFORMATION
  Report Type: Spontaneous
  Country: CN (occurrence: None)
  Receive Date: 20130409
  Receipt Date: 20130409
  Transmission Date: 20140414
  Serious: Yes (Other)
  Sender: FDA-Public Use
  Company Number: 2013P1004452

PATIENT
  Age: 50 Year
  Sex: Male

DRUGS (4)
  1. RIFAMPIN [Suspect]
     Indication: PULMONARY TUBERCULOSIS
  2. ISONIAZID [Concomitant]
  3. PYRAZINAMIDE [Concomitant]
  4. ETHAMBUTOL [Concomitant]

REACTIONS (3)
  - Systemic lupus erythematosus [None]
  - Pericarditis [None]
  - Pleurisy [None]
